FAERS Safety Report 9672122 (Version 2)
Quarter: 2013Q4

REPORT INFORMATION
  Report Type: Spontaneous
  Country: US (occurrence: US)
  Receive Date: 20131106
  Receipt Date: 20131227
  Transmission Date: 20140711
  Serious: Yes (Other)
  Sender: FDA-Public Use
  Company Number: US-JNJFOC-20131019330

PATIENT
  Age: 67 Year
  Sex: Male
  Weight: 120.57 kg

DRUGS (8)
  1. INVOKANA [Suspect]
     Indication: TYPE 2 DIABETES MELLITUS
     Route: 048
     Dates: start: 20130916, end: 2013
  2. INVOKANA [Suspect]
     Indication: TYPE 2 DIABETES MELLITUS
     Route: 048
     Dates: start: 2013
  3. INVOKANA [Suspect]
     Indication: TYPE 2 DIABETES MELLITUS
     Route: 048
     Dates: start: 2013, end: 2013
  4. METFORMIN [Concomitant]
     Indication: TYPE 2 DIABETES MELLITUS
     Route: 048
     Dates: start: 20130227
  5. LISINOPRIL [Concomitant]
     Indication: BLOOD PRESSURE
     Dates: start: 20120607
  6. LEVEMIR [Concomitant]
     Indication: DIABETES MELLITUS
     Dates: start: 20130124
  7. SIMVASTATIN [Concomitant]
     Indication: BLOOD CHOLESTEROL
     Dates: start: 20130227
  8. FORTESTA [Concomitant]
     Indication: BLOOD TESTOSTERONE DECREASED
     Dates: start: 20121210

REACTIONS (2)
  - Prostatic specific antigen increased [Recovered/Resolved]
  - Drug ineffective [Not Recovered/Not Resolved]
